APPROVED DRUG PRODUCT: CARBINOXAMINE MALEATE
Active Ingredient: CARBINOXAMINE MALEATE
Strength: 4MG
Dosage Form/Route: TABLET;ORAL
Application: A090417 | Product #001
Applicant: CYPRESS PHARMACEUTICAL INC
Approved: Aug 23, 2010 | RLD: No | RS: No | Type: DISCN